FAERS Safety Report 5110343-4 (Version None)
Quarter: 2006Q3

REPORT INFORMATION
  Report Type: 
  Country: None (occurrence: None)
  Receive Date: 20060921
  Receipt Date: 20060911
  Transmission Date: 20061208
  Serious: Yes (Death, Other)
  Sender: FDA-Public Use
  Company Number: JP-MERCK-0609USA02940

PATIENT
  Age: 84 Year
  Sex: Female

DRUGS (24)
  1. PRIMAXIN [Suspect]
     Indication: PNEUMONIA ASPIRATION
     Route: 042
     Dates: start: 20060908, end: 20060911
  2. PHENYTOIN [Concomitant]
     Route: 065
     Dates: end: 20060908
  3. PHENYTOIN [Concomitant]
     Route: 065
     Dates: start: 20060909
  4. PANALDINE [Concomitant]
     Route: 065
  5. GASTER D [Concomitant]
     Route: 048
  6. ASPIRIN [Concomitant]
     Route: 048
  7. PURSENNID [Concomitant]
     Route: 048
  8. SELBEX [Concomitant]
     Route: 048
  9. MEXITIL [Concomitant]
     Route: 048
  10. HERBESSER [Concomitant]
     Route: 048
  11. LOXONIN [Concomitant]
     Indication: PAIN
     Route: 048
  12. CYTOTEC [Concomitant]
     Indication: PAIN
     Route: 048
  13. DEXTROSE [Concomitant]
     Route: 042
  14. DEXTROSE [Concomitant]
     Route: 042
  15. [THERAPY UNSPECIFIED] [Concomitant]
     Route: 042
  16. SODIUM CHLORIDE [Concomitant]
     Route: 042
  17. VITAMINS (UNSPECIFIED) [Concomitant]
     Route: 042
  18. [THERAPY UNSPECIFIED] [Concomitant]
     Route: 042
  19. PANTHENOL [Concomitant]
     Route: 042
  20. HEPARIN SODIUM [Concomitant]
     Route: 042
  21. HEPARIN SODIUM [Concomitant]
     Route: 042
  22. PREDOPA [Concomitant]
     Route: 042
  23. ALBUMIN HUMAN [Concomitant]
     Route: 042
  24. PRIMPERAN TAB [Concomitant]
     Route: 042

REACTIONS (2)
  - DEATH [None]
  - EPILEPSY [None]
